FAERS Safety Report 9956303 (Version 1)
Quarter: 2014Q1

REPORT INFORMATION
  Report Type: Report from Study
  Country: US (occurrence: US)
  Receive Date: 20140304
  Receipt Date: 20140304
  Transmission Date: 20141002
  Serious: No
  Sender: FDA-Public Use
  Company Number: US-ABBVIE-13P-163-1086044-00

PATIENT
  Age: 64 Year
  Sex: Female

DRUGS (13)
  1. HUMIRA [Suspect]
     Indication: CROHN^S DISEASE
     Dates: start: 20130125
  2. PENTASA [Concomitant]
     Indication: CROHN^S DISEASE
  3. BROVANA [Concomitant]
     Indication: CHRONIC OBSTRUCTIVE PULMONARY DISEASE
     Dosage: NEBULIZER
     Route: 008
  4. DICYCLIMINE [Concomitant]
     Indication: GASTRIC DISORDER
  5. HCTZ [Concomitant]
     Indication: BLOOD PRESSURE
  6. OMEPRAZOLE [Concomitant]
     Indication: GASTRIC DISORDER
  7. AMITRIPTYLINE [Concomitant]
     Indication: PAIN
  8. LYRICA [Concomitant]
     Indication: PAIN
     Dosage: DAILY
  9. TRAMADOL [Concomitant]
     Indication: PAIN
     Dosage: 37.5-325MG
  10. VITAMIN D3 [Concomitant]
     Indication: PRODUCT USED FOR UNKNOWN INDICATION
  11. CALCIUM [Concomitant]
     Indication: SUPPLEMENTATION THERAPY
  12. DEXILANT [Concomitant]
     Indication: CROHN^S DISEASE
  13. NORCO [Concomitant]
     Indication: ABDOMINAL PAIN

REACTIONS (1)
  - Abdominal pain upper [Not Recovered/Not Resolved]
